FAERS Safety Report 4477433-0 (Version None)
Quarter: 2004Q4

REPORT INFORMATION
  Report Type: 
  Country: None (occurrence: None)
  Receive Date: 20041013
  Receipt Date: 20040928
  Transmission Date: 20050328
  Serious: Yes (Hospitalization)
  Sender: FDA-Public Use
  Company Number: 2004-03285

PATIENT
  Age: 69 Year
  Sex: Male

DRUGS (1)
  1. IMMUCYST (BCG - IT (CONNAUGHT)), AVENTIS PASTEUR LTD., LOT NOT REP, I9 [Suspect]
     Indication: BLADDER CANCER
     Dosage: 40 MG B. IN.
     Dates: start: 20040618

REACTIONS (3)
  - CONJUNCTIVITIS [None]
  - INFLAMMATION [None]
  - POLYARTHRITIS [None]
